FAERS Safety Report 12798554 (Version 1)
Quarter: 2016Q3

REPORT INFORMATION
  Report Type: Report from Study
  Country: US (occurrence: US)
  Receive Date: 20160930
  Receipt Date: 20160930
  Transmission Date: 20161109
  Serious: Yes (Hospitalization)
  Sender: FDA-Public Use
  Company Number: US-VERTEX PHARMACEUTICALS-2016-003929

PATIENT
  Sex: Male

DRUGS (11)
  1. VITAMIN E [Concomitant]
     Active Substance: .ALPHA.-TOCOPHEROL
  2. FISH OIL [Concomitant]
     Active Substance: FISH OIL
  3. ADVIL [Concomitant]
     Active Substance: IBUPROFEN
  4. ALBUTEROL. [Concomitant]
     Active Substance: ALBUTEROL
  5. MVI [Concomitant]
     Active Substance: VITAMINS
  6. METHYLPHENIDATE. [Concomitant]
     Active Substance: METHYLPHENIDATE
  7. CYPROHEPTADINE. [Concomitant]
     Active Substance: CYPROHEPTADINE
  8. ORKAMBI [Suspect]
     Active Substance: IVACAFTOR\LUMACAFTOR
     Indication: CYSTIC FIBROSIS
     Dosage: 2 DF, BID
     Route: 048
     Dates: start: 20160406
  9. ZENPEP [Concomitant]
     Active Substance: PANCRELIPASE AMYLASE\PANCRELIPASE LIPASE\PANCRELIPASE PROTEASE
  10. VITAMIN D3 [Concomitant]
     Active Substance: CHOLECALCIFEROL
  11. AQUADEKS [Concomitant]
     Active Substance: MINERALS\VITAMINS

REACTIONS (15)
  - Dizziness [Unknown]
  - Pyrexia [Recovering/Resolving]
  - Memory impairment [Unknown]
  - Asthenia [Unknown]
  - Headache [Recovered/Resolved]
  - Vomiting [Recovering/Resolving]
  - Decreased appetite [Recovering/Resolving]
  - Confusional state [Unknown]
  - Sunburn [Unknown]
  - Infective pulmonary exacerbation of cystic fibrosis [Unknown]
  - Impaired work ability [Unknown]
  - Nausea [Recovering/Resolving]
  - Hospitalisation [Unknown]
  - Treatment noncompliance [Unknown]
  - Paranasal sinus discomfort [Recovering/Resolving]

NARRATIVE: CASE EVENT DATE: 2016
